FAERS Safety Report 5821869-X (Version None)
Quarter: 2008Q3

REPORT INFORMATION
  Report Type: 
  Country: None (occurrence: None)
  Receive Date: 20080724
  Receipt Date: 20080717
  Transmission Date: 20090109
  Serious: Yes (Life-Threatening, Hospitalization, Other)
  Sender: FDA-Public Use
  Company Number: PL-ROCHE-573575

PATIENT
  Sex: Female

DRUGS (6)
  1. PEG-INTERFERON A-2A (RO 25-8310) [Suspect]
     Route: 065
     Dates: start: 20080508, end: 20080528
  2. RIBAVIRIN [Concomitant]
     Dosage: DOSAGE REGIMEN: EVERYDAY
     Route: 048
     Dates: start: 20080508, end: 20080528
  3. ENALAPRIL MALEATE [Concomitant]
     Dosage: DOSAGE REGIMEN: EVERY DAY
     Route: 048
  4. ACETYLSALICYLIC ACID SRT [Concomitant]
     Dosage: DOSAGE REGIMEN; EVERYDAY.
     Route: 048
  5. BISOPROLOL FUMARATE [Concomitant]
     Dosage: DOSAGE REGIMEN; EVERYDAY.
     Route: 048
  6. INDAPAMID [Concomitant]
     Dosage: DOSAGE REGIMEN; EVERYDAY.
     Route: 048

REACTIONS (12)
  - ABDOMINAL PAIN [None]
  - ASTHENIA [None]
  - BLOOD CREATININE INCREASED [None]
  - BLOOD UREA INCREASED [None]
  - HAEMOGLOBIN DECREASED [None]
  - PELVIC INFLAMMATORY DISEASE [None]
  - PERITONITIS [None]
  - PYREXIA [None]
  - SUBILEUS [None]
  - TUBO-OVARIAN ABSCESS [None]
  - VOMITING [None]
  - WHITE BLOOD CELL COUNT INCREASED [None]
